FAERS Safety Report 16850625 (Version 1)
Quarter: 2019Q3

REPORT INFORMATION
  Report Type: Spontaneous
  Country: US (occurrence: US)
  Receive Date: 20190925
  Receipt Date: 20190925
  Transmission Date: 20191005
  Serious: No
  Sender: FDA-Public Use
  Company Number: US-THERAPEUTICSMD-2019TMD02418

PATIENT
  Age: 55 Year
  Sex: Female
  Weight: 65.76 kg

DRUGS (9)
  1. IMVEXXY [Suspect]
     Active Substance: ESTRADIOL
     Indication: DYSPAREUNIA
  2. IMVEXXY [Suspect]
     Active Substance: ESTRADIOL
     Indication: VULVOVAGINAL DRYNESS
     Dosage: 4 ?G, 1X/DAY AT ABOUT 1 PM
     Route: 067
     Dates: start: 20190801
  3. JUICE PLUS [Concomitant]
     Active Substance: DIETARY SUPPLEMENT
     Dosage: UNK, 1X/DAY
  4. IMVEXXY [Suspect]
     Active Substance: ESTRADIOL
     Indication: DYSPAREUNIA
  5. VITAMIN D [Concomitant]
     Active Substance: VITAMIN D NOS
     Dosage: UNK, 1X/DAY
  6. VITAMIN C [Concomitant]
     Active Substance: ASCORBIC ACID
     Dosage: UNK, 1X/DAY
  7. IMVEXXY [Suspect]
     Active Substance: ESTRADIOL
     Indication: VAGINAL DISCHARGE
  8. IMVEXXY [Suspect]
     Active Substance: ESTRADIOL
     Indication: VAGINAL DISCHARGE
  9. IMVEXXY [Suspect]
     Active Substance: ESTRADIOL
     Indication: VULVOVAGINAL DRYNESS
     Dosage: 10 ?G, 1X/DAY AT ABOUT 1 PM
     Route: 067
     Dates: start: 20190725, end: 20190726

REACTIONS (5)
  - Off label use [Unknown]
  - Faeces soft [Not Recovered/Not Resolved]
  - Mucous stools [Not Recovered/Not Resolved]
  - Diarrhoea [Not Recovered/Not Resolved]
  - Flatulence [Unknown]

NARRATIVE: CASE EVENT DATE: 20190725
